FAERS Safety Report 14326708 (Version 1)
Quarter: 2017Q4

REPORT INFORMATION
  Report Type: Spontaneous
  Country: US (occurrence: US)
  Receive Date: 20171226
  Receipt Date: 20171226
  Transmission Date: 20180321
  Serious: Yes (Other)
  Sender: FDA-Public Use
  Company Number: None

PATIENT
  Age: 47 Year
  Sex: Female
  Weight: 85.05 kg

DRUGS (4)
  1. LEVOTHYROXINE. [Concomitant]
     Active Substance: LEVOTHYROXINE
  2. EQUATE WOMEN^S 50 MUTIVITAMIN/MUTIMINERAL [Concomitant]
  3. FINEST NUTRITION REGULA STRENGHT FISH OIL [Concomitant]
  4. SERTRALINE 25 MG TABLET,KAISER PERMANENTE [Suspect]
     Active Substance: SERTRALINE HYDROCHLORIDE
     Indication: ANXIETY
     Dosage: ?          QUANTITY:1 TABLET(S);?
     Route: 048
     Dates: start: 20171202, end: 20171225

REACTIONS (3)
  - Hypersensitivity [None]
  - Rash [None]
  - Sinus disorder [None]

NARRATIVE: CASE EVENT DATE: 20171223
